FAERS Safety Report 11097022 (Version 2)
Quarter: 2015Q3

REPORT INFORMATION
  Report Type: Spontaneous
  Country: FR (occurrence: FR)
  Receive Date: 20150507
  Receipt Date: 20150728
  Transmission Date: 20151125
  Serious: Yes (Death, Life-Threatening, Hospitalization, Other)
  Sender: FDA-Public Use
  Company Number: FR-ELI_LILLY_AND_COMPANY-FR201504009828

PATIENT
  Age: 66 Year
  Sex: Female

DRUGS (10)
  1. SIFROL [Suspect]
     Active Substance: PRAMIPEXOLE
     Indication: RESTLESS LEGS SYNDROME
     Dosage: 0.18 MG, QD
     Route: 065
  2. SIFROL [Suspect]
     Active Substance: PRAMIPEXOLE
     Dosage: 0.35 MG, QD
     Route: 065
     Dates: start: 20141222
  3. LAROXYL [Suspect]
     Active Substance: AMITRIPTYLINE
     Indication: PRODUCT USED FOR UNKNOWN INDICATION
     Dosage: 10 DF, QD
     Route: 048
     Dates: end: 20150101
  4. ATORVASTATINE                      /01326101/ [Suspect]
     Active Substance: ATORVASTATIN
     Indication: HYPERCHOLESTEROLAEMIA
     Dosage: 40 MG, QD
     Route: 048
  5. STAGID [Suspect]
     Active Substance: METFORMIN PAMOATE
     Indication: DIABETES MELLITUS
     Dosage: 700 MG, TID
     Route: 048
     Dates: end: 20150101
  6. ATARAX [Suspect]
     Active Substance: HYDROXYZINE\HYDROXYZINE HYDROCHLORIDE
     Indication: PRODUCT USED FOR UNKNOWN INDICATION
     Dosage: 22 MG, QD
     Route: 048
     Dates: start: 20141222, end: 20150101
  7. RITALINE [Suspect]
     Active Substance: METHYLPHENIDATE HYDROCHLORIDE
     Indication: NARCOLEPSY
     Dosage: 40 MG, QD
     Route: 048
     Dates: end: 20150101
  8. COUMADINE [Suspect]
     Active Substance: WARFARIN SODIUM
     Indication: DEEP VEIN THROMBOSIS
     Dosage: UNK, UNKNOWN
     Route: 065
     Dates: end: 20150101
  9. JANUVIA [Suspect]
     Active Substance: SITAGLIPTIN PHOSPHATE
     Indication: DIABETES MELLITUS
     Dosage: 100 MG, QD
     Route: 048
     Dates: end: 20150101
  10. CYMBALTA [Suspect]
     Active Substance: DULOXETINE HYDROCHLORIDE
     Indication: PRODUCT USED FOR UNKNOWN INDICATION
     Dosage: 30 MG, QD
     Route: 048
     Dates: end: 20150101

REACTIONS (11)
  - Multi-organ failure [Fatal]
  - Aphasia [Unknown]
  - Infection [Unknown]
  - Hemiplegia [Unknown]
  - Sensory loss [Unknown]
  - VIIth nerve paralysis [Unknown]
  - Cerebral haemorrhage [Not Recovered/Not Resolved]
  - Brain oedema [Unknown]
  - Candida sepsis [Fatal]
  - Embolism [Unknown]
  - Septic shock [Fatal]

NARRATIVE: CASE EVENT DATE: 20150101
